FAERS Safety Report 18986924 (Version 1)
Quarter: 2021Q1

REPORT INFORMATION
  Report Type: Report from Study
  Country: IT (occurrence: IT)
  Receive Date: 20210309
  Receipt Date: 20210309
  Transmission Date: 20210420
  Serious: Yes (Other)
  Sender: FDA-Public Use
  Company Number: IT-TAKEDA-2021TUS012398

PATIENT
  Age: 72 Year
  Sex: Male

DRUGS (3)
  1. VEDOLIZUMAB [Suspect]
     Active Substance: VEDOLIZUMAB
     Indication: COLITIS ULCERATIVE
     Dosage: 300 MILLIGRAM
     Route: 042
     Dates: start: 20191101, end: 20210105
  2. ASACOL [Concomitant]
     Active Substance: MESALAMINE
     Indication: COLITIS ULCERATIVE
     Dosage: 500 MILLIGRAM
     Route: 054
  3. ASACOL [Concomitant]
     Active Substance: MESALAMINE
     Dosage: 2400 MILLIGRAM
     Route: 048

REACTIONS (2)
  - Loss of therapeutic response [Unknown]
  - Colitis ulcerative [Not Recovered/Not Resolved]

NARRATIVE: CASE EVENT DATE: 20210103
